FAERS Safety Report 7337748-5 (Version None)
Quarter: 2011Q1

REPORT INFORMATION
  Report Type: 
  Country: None (occurrence: None)
  Receive Date: 20110308
  Receipt Date: 20110228
  Transmission Date: 20110831
  Serious: Yes (Death, Life-Threatening, Other)
  Sender: FDA-Public Use
  Company Number: JP-SANOFI-AVENTIS-2011SA012337

PATIENT
  Age: 69 Year
  Sex: Male

DRUGS (17)
  1. OXALIPLATIN [Suspect]
     Indication: RECTAL CANCER RECURRENT
     Route: 042
     Dates: start: 20090321, end: 20090321
  2. AVASTIN [Suspect]
     Route: 041
     Dates: start: 20100114, end: 20100114
  3. CALCICOL [Concomitant]
     Dates: start: 20100114, end: 20100114
  4. OXALIPLATIN [Suspect]
     Route: 042
     Dates: start: 20100114, end: 20100114
  5. DECADRON [Concomitant]
     Dates: start: 20100114, end: 20100114
  6. 5-FU [Concomitant]
     Dates: start: 20090321, end: 20090321
  7. DICLOFENAC SODIUM [Concomitant]
     Dates: start: 20091224, end: 20100210
  8. CALCIUM LEVOFOLINATE [Concomitant]
     Dates: start: 20090321, end: 20090321
  9. IRINOTECAN [Concomitant]
     Dates: start: 20090514, end: 20090514
  10. AVASTIN [Suspect]
     Indication: RECTAL CANCER RECURRENT
     Route: 041
     Dates: start: 20090321, end: 20090321
  11. CALCIUM LEVOFOLINATE [Concomitant]
     Dates: start: 20100114, end: 20100114
  12. IRINOTECAN [Concomitant]
     Dates: start: 20090806, end: 20090806
  13. KYTRIL [Concomitant]
     Dates: start: 20100114, end: 20100114
  14. PROTECADIN [Concomitant]
     Dates: start: 20080422, end: 20100210
  15. TS-1 [Concomitant]
     Dates: start: 20090820, end: 20091210
  16. 5-FU [Concomitant]
     Dates: start: 20100101, end: 20100101
  17. RESTAMIN [Concomitant]
     Dates: start: 20100114, end: 20100114

REACTIONS (5)
  - SMALL INTESTINAL PERFORATION [None]
  - NEUROPATHY PERIPHERAL [None]
  - PELVIC ABSCESS [None]
  - ILEAL FISTULA [None]
  - DISEASE PROGRESSION [None]
